FAERS Safety Report 6261712-0 (Version None)
Quarter: 2009Q3

REPORT INFORMATION
  Report Type: 
  Country: None (occurrence: None)
  Receive Date: 20090709
  Receipt Date: 20090701
  Transmission Date: 20100115
  Serious: Yes (Death, Hospitalization)
  Sender: FDA-Public Use
  Company Number: ES-ELI_LILLY_AND_COMPANY-ES200907000624

PATIENT
  Age: 81 Year
  Sex: Male

DRUGS (7)
  1. FORTEO [Suspect]
     Indication: OSTEOPOROSIS
     Dosage: 20 UG, UNKNOWN
     Route: 058
     Dates: start: 20090301
  2. SPIRIVA [Concomitant]
     Dosage: UNK, UNKNOWN
     Route: 065
  3. TARDYFERON [Concomitant]
     Dosage: UNK, UNKNOWN
     Route: 065
  4. CALCIUM [Concomitant]
     Dosage: UNK, UNKNOWN
     Route: 065
  5. BIOCAL [Concomitant]
     Dosage: UNK, UNKNOWN
     Route: 065
  6. CORTISONE [Concomitant]
     Dosage: UNK, UNKNOWN
     Route: 065
  7. DACORTIN [Concomitant]
     Dosage: UNK, UNKNOWN
     Route: 065

REACTIONS (2)
  - CARDIO-RESPIRATORY ARREST [None]
  - LUNG DISORDER [None]
